FAERS Safety Report 23753353 (Version 3)
Quarter: 2024Q4

REPORT INFORMATION
  Report Type: Report from Study
  Country: US (occurrence: US)
  Receive Date: 20240417
  Receipt Date: 20241224
  Transmission Date: 20250115
  Serious: Yes (Other)
  Sender: XERIS PHARMACEUTICALS
  Company Number: US-BRIAN CONNER SVP QUALITY AND CHIEF COMPLIANCE OFFICER-2024XER00200

PATIENT
  Sex: Male

DRUGS (4)
  1. RECORLEV [Suspect]
     Active Substance: LEVOKETOCONAZOLE
     Indication: Cushing^s syndrome
     Dosage: 1 TABLET (150 MG), 2X/DAY
     Route: 048
     Dates: start: 20240112, end: 2024
  2. RECORLEV [Suspect]
     Active Substance: LEVOKETOCONAZOLE
     Dosage: 1 TABLET (150 MG), 2X/DAY
     Route: 048
     Dates: start: 2024
  3. TESTOSTERONE [Concomitant]
     Active Substance: TESTOSTERONE
     Dosage: UNK
  4. TESTOSTERONE [Concomitant]
     Active Substance: TESTOSTERONE
     Dosage: ^UPPED^

REACTIONS (5)
  - Atypical pneumonia [Recovering/Resolving]
  - Nasopharyngitis [Recovering/Resolving]
  - Weight decreased [Not Recovered/Not Resolved]
  - Cortisol increased [Not Recovered/Not Resolved]
  - Cortisol decreased [Recovering/Resolving]

NARRATIVE: CASE EVENT DATE: 20240101
